FAERS Safety Report 4718809-3 (Version None)
Quarter: 2005Q3

REPORT INFORMATION
  Report Type: 
  Country: None (occurrence: None)
  Receive Date: 20050719
  Receipt Date: 20050707
  Transmission Date: 20060218
  Serious: Yes (Other)
  Sender: FDA-Public Use
  Company Number: 2005S1000107

PATIENT
  Age: 73 Year
  Sex: Female
  Weight: 104.5 kg

DRUGS (21)
  1. CUBICIN [Suspect]
     Indication: ENTEROVIRUS INFECTION
     Dosage: 7.7 MG/KG;Q24H;IV
     Route: 042
     Dates: start: 20050101, end: 20050610
  2. CUBICIN [Suspect]
     Indication: PATHOGEN RESISTANCE
     Dosage: 7.7 MG/KG;Q24H;IV
     Route: 042
     Dates: start: 20050101, end: 20050610
  3. CUBICIN [Suspect]
     Indication: WOUND INFECTION PSEUDOMONAS
     Dosage: 7.7 MG/KG;Q24H;IV
     Route: 042
     Dates: start: 20050101, end: 20050610
  4. CEFEPIME [Suspect]
     Indication: ENTEROVIRUS INFECTION
     Dosage: 2 GM;Q12H;IV
     Route: 042
     Dates: end: 20050501
  5. CEFEPIME [Suspect]
     Indication: PATHOGEN RESISTANCE
     Dosage: 2 GM;Q12H;IV
     Route: 042
     Dates: end: 20050501
  6. CEFEPIME [Suspect]
     Indication: WOUND INFECTION PSEUDOMONAS
     Dosage: 2 GM;Q12H;IV
     Route: 042
     Dates: end: 20050501
  7. RAMIPRIL [Concomitant]
  8. CELECOXIB [Concomitant]
  9. DESLORATADINE [Concomitant]
  10. DILTIAZEM [Concomitant]
  11. FUROSEMIDE [Concomitant]
  12. ISOSORBIDE [Concomitant]
  13. MORPHINE [Concomitant]
  14. M.V.I. [Concomitant]
  15. POTASSIUM CHLORIDE [Concomitant]
  16. PANTOPRAZOLE [Concomitant]
  17. SENNA [Concomitant]
  18. METOPROLOL [Concomitant]
  19. FENTANYL [Concomitant]
  20. CEFEPIME [Concomitant]
  21. LEVOFLOXACIN [Concomitant]

REACTIONS (7)
  - DIASTOLIC DYSFUNCTION [None]
  - DRUG WITHDRAWAL SYNDROME [None]
  - HAEMODIALYSIS [None]
  - MYOCLONUS [None]
  - OEDEMA PERIPHERAL [None]
  - PULMONARY HYPERTENSION [None]
  - RENAL FAILURE ACUTE [None]
